FAERS Safety Report 15433499 (Version 2)
Quarter: 2018Q4

REPORT INFORMATION
  Report Type: Report from Study
  Country: AU (occurrence: AU)
  Receive Date: 20180927
  Receipt Date: 20181012
  Transmission Date: 20190204
  Serious: Yes (Other)
  Sender: FDA-Public Use
  Company Number: AU-ROCHE-2188188

PATIENT
  Age: 61 Year
  Sex: Female
  Weight: 70.6 kg

DRUGS (14)
  1. PARACETAMOL [Concomitant]
     Active Substance: ACETAMINOPHEN
     Indication: BACK PAIN
     Route: 048
     Dates: start: 20180409
  2. UMECLIDINIUM [Concomitant]
     Active Substance: UMECLIDINIUM BROMIDE
     Indication: EMPHYSEMA
     Route: 045
     Dates: start: 20180216
  3. HYDROCORTISONE. [Concomitant]
     Active Substance: HYDROCORTISONE
     Indication: RASH
     Route: 061
     Dates: start: 20180919
  4. PHOLCODINE [Concomitant]
     Active Substance: PHOLCODINE
     Indication: EMPHYSEMA
     Route: 048
     Dates: start: 20180514
  5. OXYCODONE [Concomitant]
     Active Substance: OXYCODONE
     Indication: PAIN
     Route: 048
     Dates: start: 20180625
  6. NALOXONE [Concomitant]
     Active Substance: NALOXONE
     Indication: PAIN
     Route: 048
     Dates: start: 20180625
  7. ATEZOLIZUMAB. [Suspect]
     Active Substance: ATEZOLIZUMAB
     Indication: NON-SMALL CELL LUNG CANCER
     Dosage: DATE OF MOST RECENT DOSE (1200 MG) OF ATEZOLIZUMABPRIOR TO AE ONSET: 17/SEP/2018
     Route: 042
     Dates: start: 20180219
  8. TEMAZEPAM. [Concomitant]
     Active Substance: TEMAZEPAM
     Indication: INSOMNIA
     Route: 048
     Dates: start: 20180514
  9. ENDONE [Concomitant]
     Active Substance: OXYCODONE HYDROCHLORIDE
     Indication: PAIN
     Route: 048
     Dates: start: 20180625
  10. ASPRIN [Concomitant]
     Active Substance: ASPIRIN
     Route: 048
     Dates: start: 2017
  11. METHYLPREDNISOLONE. [Concomitant]
     Active Substance: METHYLPREDNISOLONE
     Indication: PSORIASIS
     Route: 061
     Dates: start: 20180604
  12. BION EYES (UNK INGREDIENTS) [Concomitant]
     Indication: VISION BLURRED
     Route: 047
     Dates: start: 20180719
  13. PARACETAMOL [Concomitant]
     Active Substance: ACETAMINOPHEN
     Indication: MIGRAINE
     Route: 048
  14. CELEBREX [Concomitant]
     Active Substance: CELECOXIB
     Indication: ARTHRALGIA
     Route: 048
     Dates: start: 20180604

REACTIONS (1)
  - Cytokine release syndrome [Recovered/Resolved]

NARRATIVE: CASE EVENT DATE: 20180919
